FAERS Safety Report 9304365 (Version 2)
Quarter: 2013Q3

REPORT INFORMATION
  Report Type: Spontaneous
  Country: US (occurrence: US)
  Receive Date: 20130522
  Receipt Date: 20130923
  Transmission Date: 20140515
  Serious: Yes (Death)
  Sender: FDA-Public Use
  Company Number: US-B.I. PHARMACEUTICALS,INC./RIDGEFIELD-2013-BI-13490BP

PATIENT
  Age: 65 Year
  Sex: Female
  Weight: 57 kg

DRUGS (2)
  1. COMBIVENT [Suspect]
     Indication: CHRONIC OBSTRUCTIVE PULMONARY DISEASE
     Dates: start: 201302
  2. COMBIVENT [Suspect]
     Indication: EMPHYSEMA

REACTIONS (1)
  - Death [Fatal]
